FAERS Safety Report 15955191 (Version 3)
Quarter: 2019Q3

REPORT INFORMATION
  Report Type: Spontaneous
  Country: US (occurrence: US)
  Receive Date: 20190213
  Receipt Date: 20190703
  Transmission Date: 20191004
  Serious: No
  Sender: FDA-Public Use
  Company Number: US-PFIZER INC-2019055449

PATIENT
  Age: 56 Year
  Sex: Male
  Weight: 96.15 kg

DRUGS (2)
  1. DILANTIN [Suspect]
     Active Substance: PHENYTOIN
     Indication: EPILEPSY
  2. DILANTIN [Suspect]
     Active Substance: PHENYTOIN
     Indication: SEIZURE
     Dosage: 500 MG, DAILY(100MG CAPSULES,2 CAPSULES BY MOUTH IN THE MORNING,3 CAPSULES BY MOUTH IN THE EVENING)
     Route: 048
     Dates: start: 1992

REACTIONS (2)
  - Lung disorder [Unknown]
  - Exposure via inhalation [Not Recovered/Not Resolved]

NARRATIVE: CASE EVENT DATE: 20190205
